FAERS Safety Report 4306606-2 (Version None)
Quarter: 2004Q1

REPORT INFORMATION
  Report Type: 
  Country: None (occurrence: None)
  Receive Date: 20040225
  Receipt Date: 20031201
  Transmission Date: 20041129
  Serious: No
  Sender: FDA-Public Use
  Company Number: US-BRISTOL-MYERS SQUIBB COMPANY-12413514

PATIENT
  Age: 46 Year
  Sex: Male

DRUGS (4)
  1. EXCEDRIN (MIGRAINE) [Suspect]
     Indication: HEADACHE
     Dosage: DOSING: 1 TABLET (4 PER MONTH).
  2. ASPRO [Concomitant]
  3. PONSTAN [Concomitant]
  4. ACETAMINOPHEN [Concomitant]

REACTIONS (1)
  - GASTRIC DISORDER [None]
